FAERS Safety Report 8256203-1 (Version None)
Quarter: 2012Q2

REPORT INFORMATION
  Report Type: 
  Country: None (occurrence: None)
  Receive Date: 20120403
  Receipt Date: 20120323
  Transmission Date: 20120825
  Serious: Yes (Hospitalization)
  Sender: FDA-Public Use
  Company Number: US-ROCHE-798168

PATIENT
  Sex: Female
  Weight: 71 kg

DRUGS (4)
  1. VEMURAFENIB [Suspect]
     Dosage: DOSE WAS REDUCED
     Route: 048
  2. VEMURAFENIB [Suspect]
     Indication: METASTATIC MALIGNANT MELANOMA
     Dosage: LAST DOSE PRIOR TO SAE: 18 SEP 2011
     Route: 048
  3. VANCOMYCIN [Concomitant]
     Route: 042
  4. DIPHENHYDRAMINE HCL [Concomitant]
     Route: 048

REACTIONS (1)
  - DERMATITIS [None]
